FAERS Safety Report 6312303-4 (Version None)
Quarter: 2009Q3

REPORT INFORMATION
  Report Type: 
  Country: None (occurrence: None)
  Receive Date: 20090817
  Receipt Date: 20090803
  Transmission Date: 20100115
  Serious: Yes (Hospitalization)
  Sender: FDA-Public Use
  Company Number: JP-MYLANLABS-2009S1013839

PATIENT
  Age: 69 Year
  Sex: Male

DRUGS (1)
  1. TICLOPIDINE HCL [Suspect]
     Indication: CEREBRAL INFARCTION

REACTIONS (3)
  - APLASIA PURE RED CELL [None]
  - DISEASE COMPLICATION [None]
  - HEPATITIS CHOLESTATIC [None]
